FAERS Safety Report 4812509-7 (Version None)
Quarter: 2005Q4

REPORT INFORMATION
  Report Type: 
  Country: None (occurrence: None)
  Receive Date: 20051028
  Receipt Date: 20050209
  Transmission Date: 20060501
  Serious: No
  Sender: FDA-Public Use
  Company Number: US-GLAXOSMITHKLINE-A0544778A

PATIENT
  Age: 60 Year
  Sex: Female

DRUGS (9)
  1. ADVAIR DISKUS 100/50 [Suspect]
     Indication: ASTHMA
     Dosage: 1PUFF TWICE PER DAY
     Route: 055
  2. SYNTHROID [Concomitant]
  3. ESTROGEN REPLACEMENT [Concomitant]
  4. SINGULAIR [Concomitant]
  5. PREVACID [Concomitant]
  6. ASTELIN [Concomitant]
  7. PROVENTIL [Concomitant]
  8. NYSTATIN [Concomitant]
  9. MYCELEX [Concomitant]

REACTIONS (2)
  - ORAL CANDIDIASIS [None]
  - VULVOVAGINAL MYCOTIC INFECTION [None]
